FAERS Safety Report 5999086-2 (Version None)
Quarter: 2008Q4

REPORT INFORMATION
  Report Type: 
  Country: None (occurrence: None)
  Receive Date: 20081211
  Receipt Date: 20081126
  Transmission Date: 20090506
  Serious: Yes (Other)
  Sender: FDA-Public Use
  Company Number: JPI-P-005492

PATIENT
  Age: 48 Year

DRUGS (5)
  1. XYREM [Suspect]
     Indication: NARCOLEPSY
     Dosage: 4.5 GM (2.25 GM, 2 IN 1 D), ORAL; 6 GM (3 GM,2 IN 1 D), ORAL; 7 GM (3.5 GM,2 IN 1 D), ORAL
     Route: 048
     Dates: start: 20080401, end: 20081101
  2. XYREM [Suspect]
     Indication: NARCOLEPSY
     Dosage: 4.5 GM (2.25 GM, 2 IN 1 D), ORAL; 6 GM (3 GM,2 IN 1 D), ORAL; 7 GM (3.5 GM,2 IN 1 D), ORAL
     Route: 048
     Dates: start: 20081101, end: 20081115
  3. XYREM [Suspect]
     Indication: NARCOLEPSY
     Dosage: 4.5 GM (2.25 GM, 2 IN 1 D), ORAL; 6 GM (3 GM,2 IN 1 D), ORAL; 7 GM (3.5 GM,2 IN 1 D), ORAL
     Route: 048
     Dates: start: 20081116, end: 20081123
  4. ZOLPIDEM TARTRATE [Concomitant]
  5. TEMAZEPAM [Concomitant]

REACTIONS (7)
  - ANOREXIA [None]
  - ASTHENIA [None]
  - INITIAL INSOMNIA [None]
  - NAUSEA [None]
  - RETINAL DETACHMENT [None]
  - VERTIGO [None]
  - WEIGHT DECREASED [None]
